FAERS Safety Report 20111170 (Version 1)
Quarter: 2021Q4

REPORT INFORMATION
  Report Type: Spontaneous
  Country: None (occurrence: US)
  Receive Date: 20211125
  Receipt Date: 20211125
  Transmission Date: 20220303
  Serious: No
  Sender: FDA-Public Use
  Company Number: US-Jiangsu Hengrui Medicine Co., Ltd.-2122306

PATIENT
  Age: 15 Year
  Sex: Female

DRUGS (6)
  1. CYCLOPHOSPHAMIDE [Suspect]
     Active Substance: CYCLOPHOSPHAMIDE
     Indication: Rhabdomyosarcoma recurrent
     Dates: start: 20201106
  2. IRINOTECAN HYDROCHLORIDE [Suspect]
     Active Substance: IRINOTECAN HYDROCHLORIDE
     Dates: start: 20200926, end: 20201016
  3. VINCRISTINE SULFATE [Suspect]
     Active Substance: VINCRISTINE SULFATE
     Dates: start: 20200926, end: 20201016
  4. TEMOZOLOMIDE [Suspect]
     Active Substance: TEMOZOLOMIDE
     Dates: start: 20200926, end: 20201016
  5. TEMSIROLIMUS [Suspect]
     Active Substance: TEMSIROLIMUS
     Dates: start: 20201106
  6. VINORELBINE [Suspect]
     Active Substance: VINORELBINE TARTRATE
     Dates: start: 20201106

REACTIONS (1)
  - Neoplasm progression [Unknown]
